FAERS Safety Report 6862254-1 (Version None)
Quarter: 2010Q3

REPORT INFORMATION
  Report Type: 
  Country: None (occurrence: None)
  Receive Date: 20100721
  Receipt Date: 20100714
  Transmission Date: 20110219
  Serious: Yes (Other)
  Sender: FDA-Public Use
  Company Number: DE-NOVOPROD-304241

PATIENT
  Sex: Female
  Weight: 42.7 kg

DRUGS (5)
  1. NORDITROPIN NORDIFLEX [Suspect]
     Indication: DWARFISM
     Dosage: UNK
     Route: 058
     Dates: start: 20091117, end: 20100206
  2. VIGANTOLETTEN [Concomitant]
  3. BICANORM                           /00049401/ [Concomitant]
  4. FERROSANOL [Concomitant]
  5. CIPROFLOXACIN [Concomitant]
     Dosage: UNK
     Dates: start: 20090801

REACTIONS (4)
  - FACE OEDEMA [None]
  - HEADACHE [None]
  - NAUSEA [None]
  - RASH GENERALISED [None]
